FAERS Safety Report 6312010-8 (Version None)
Quarter: 2009Q3

REPORT INFORMATION
  Report Type: 
  Country: None (occurrence: None)
  Receive Date: 20090817
  Receipt Date: 20090806
  Transmission Date: 20100115
  Serious: Yes (Other)
  Sender: FDA-Public Use
  Company Number: PHHY2009JP21123

PATIENT

DRUGS (2)
  1. DIOVAN HCT [Suspect]
     Indication: HYPERTENSION
     Dosage: 1 DF DAILY
     Route: 048
  2. DIOVAN [Suspect]
     Route: 048

REACTIONS (1)
  - HYPONATRAEMIA [None]
